FAERS Safety Report 16778467 (Version 1)
Quarter: 2019Q3

REPORT INFORMATION
  Report Type: Report from Study
  Country: None (occurrence: US)
  Receive Date: 20190906
  Receipt Date: 20190906
  Transmission Date: 20191005
  Serious: Yes (Other)
  Sender: FDA-Public Use
  Company Number: US-ABBVIE-19K-163-2909527-00

PATIENT
  Sex: Female

DRUGS (1)
  1. HUMIRA [Suspect]
     Active Substance: ADALIMUMAB
     Indication: CROHN^S DISEASE
     Route: 058

REACTIONS (8)
  - Diarrhoea [Unknown]
  - Polyp [Unknown]
  - Pain [Unknown]
  - Injection site pain [Unknown]
  - Abdominal distension [Unknown]
  - Upper-airway cough syndrome [Unknown]
  - Flatulence [Unknown]
  - Dyschezia [Unknown]
